FAERS Safety Report 10211223 (Version 1)
Quarter: 2014Q2

REPORT INFORMATION
  Report Type: Spontaneous
  Country: IN (occurrence: IN)
  Receive Date: 20140602
  Receipt Date: 20140602
  Transmission Date: 20141212
  Serious: Yes (Other)
  Sender: FDA-Public Use
  Company Number: IN-ACTAVIS-2014-11745

PATIENT
  Age: 49 Year
  Sex: Male

DRUGS (2)
  1. CISPLATIN (UNKNOWN) [Suspect]
     Indication: SMALL CELL LUNG CANCER EXTENSIVE STAGE
     Dosage: 30 MG/M2, 1/ THREE WEEKS
     Route: 065
  2. IRINOTECAN (UNKNOWN) [Suspect]
     Indication: SMALL CELL LUNG CANCER EXTENSIVE STAGE
     Dosage: 65 MG/M2, 1/ THREE WEEKS
     Route: 065

REACTIONS (1)
  - Extrapulmonary tuberculosis [Recovered/Resolved]
